FAERS Safety Report 21883805 (Version 1)
Quarter: 2023Q1

REPORT INFORMATION
  Report Type: Other
  Country: GB (occurrence: GB)
  Receive Date: 20230119
  Receipt Date: 20230119
  Transmission Date: 20230418
  Serious: Yes (Life-Threatening)
  Sender: FDA-Public Use
  Company Number: None

PATIENT
  Age: 40 Year
  Sex: Male
  Weight: 158 kg

DRUGS (6)
  1. NAPROXEN [Suspect]
     Active Substance: NAPROXEN
     Indication: Anaphylactic reaction
     Dosage: UNK,TAKE ONE TWICE DAILY FOR PAIN RELIEF +/OR ARTHR...
     Route: 065
     Dates: start: 20230110, end: 20230110
  2. NAPROXEN [Suspect]
     Active Substance: NAPROXEN
     Indication: Ill-defined disorder
     Dosage: UNK
     Route: 065
     Dates: start: 20230110
  3. CAPSAICIN [Concomitant]
     Active Substance: CAPSAICIN
     Indication: Ill-defined disorder
     Dosage: UNK, APPLY 3-4 TIMES/DAY
     Route: 065
     Dates: start: 20230110
  4. CODEINE PHOSPHATE [Concomitant]
     Active Substance: CODEINE PHOSPHATE
     Indication: Ill-defined disorder
     Dosage: UNK, TAKE ONE OR TWO EVERY 4 HOURS TO RELIEVE PAIN
     Route: 065
     Dates: start: 20230110
  5. DIAZEPAM [Concomitant]
     Active Substance: DIAZEPAM
     Indication: Ill-defined disorder
     Dosage: UNK, TAKE ONE EVERY 8 HOURS IF NEEDED
     Route: 065
     Dates: start: 20230110
  6. LANSOPRAZOLE [Concomitant]
     Active Substance: LANSOPRAZOLE
     Indication: Ill-defined disorder
     Dosage: UNK, TAKE ONE ONCE DAILY TO PROTECT STOMACH WHILST T...
     Route: 065
     Dates: start: 20230110, end: 20230110

REACTIONS (2)
  - Anaphylactic reaction [Recovered/Resolved]
  - Condition aggravated [Recovered/Resolved]

NARRATIVE: CASE EVENT DATE: 20230111
